FAERS Safety Report 9925660 (Version 1)
Quarter: 2014Q1

REPORT INFORMATION
  Report Type: Spontaneous
  Country: US (occurrence: None)
  Receive Date: 20140221
  Receipt Date: 20140221
  Transmission Date: 20141002
  Serious: Yes (Hospitalization)
  Sender: FDA-Public Use
  Company Number: 001640103A

PATIENT
  Age: 17 Year
  Sex: Female

DRUGS (4)
  1. PROACTIV+ SKIN SMOOTHING EXFOLIATOR [Suspect]
     Indication: ACNE
     Dosage: DERMAL
     Route: 061
     Dates: start: 20131114, end: 20131126
  2. PROACTIV+ PORE TARGETING TREATMENT [Suspect]
     Indication: ACNE
     Dosage: DERMAL
     Route: 061
     Dates: start: 20131114, end: 20131126
  3. PROACTIV+ COMPLEXION PERFECTING HYDRATOR [Suspect]
     Indication: ACNE
     Dosage: DERMAL
     Route: 061
     Dates: start: 20131114, end: 20131126
  4. PROACTIV+ SKIN PURIFYING MASK [Suspect]
     Indication: ACNE
     Dosage: DERMAL
     Route: 061
     Dates: start: 20131114, end: 20131126

REACTIONS (1)
  - Rash generalised [None]
